FAERS Safety Report 5840627-3 (Version None)
Quarter: 2008Q3

REPORT INFORMATION
  Report Type: 
  Country: None (occurrence: None)
  Receive Date: 20080811
  Receipt Date: 20080805
  Transmission Date: 20090109
  Serious: Yes (Death, Hospitalization)
  Sender: FDA-Public Use
  Company Number: US-GILEAD-2008-0016639

PATIENT
  Sex: Female
  Weight: 53.572 kg

DRUGS (1)
  1. LETAIRIS [Suspect]
     Indication: PULMONARY ARTERIAL HYPERTENSION
     Route: 048
     Dates: start: 20071201

REACTIONS (5)
  - DEATH [None]
  - HYPERTENSION [None]
  - RENAL AND PANCREAS TRANSPLANT [None]
  - RENAL FAILURE [None]
  - RESPIRATORY FAILURE [None]
